FAERS Safety Report 25831742 (Version 1)
Quarter: 2025Q3

REPORT INFORMATION
  Report Type: Spontaneous
  Country: EU (occurrence: EU)
  Receive Date: 20250922
  Receipt Date: 20250922
  Transmission Date: 20251021
  Serious: Yes (Other)
  Sender: SUNOVION
  Company Number: EU-RICHTER-2025-GR-010041

PATIENT
  Age: 31 Year
  Sex: Female

DRUGS (1)
  1. ESTRADIOL\NORETHINDRONE ACETATE\RELUGOLIX [Suspect]
     Active Substance: ESTRADIOL\NORETHINDRONE ACETATE\RELUGOLIX
     Indication: Endometriosis

REACTIONS (7)
  - Ischaemic stroke [Unknown]
  - Asthma [Unknown]
  - Blood pressure decreased [Unknown]
  - Vomiting [Unknown]
  - Bradycardia [Unknown]
  - Nausea [Unknown]
  - Dizziness [Unknown]

NARRATIVE: CASE EVENT DATE: 20250501
